FAERS Safety Report 7603195-1 (Version None)
Quarter: 2011Q3

REPORT INFORMATION
  Report Type: 
  Country: None (occurrence: None)
  Receive Date: 20110712
  Receipt Date: 20110706
  Transmission Date: 20111222
  Serious: Yes (Death)
  Sender: FDA-Public Use
  Company Number: US-GILEAD-2011-0037747

PATIENT
  Sex: Female

DRUGS (3)
  1. LETAIRIS [Suspect]
     Route: 048
     Dates: start: 20090107, end: 20101101
  2. LETAIRIS [Suspect]
     Indication: PULMONARY HYPERTENSION
     Route: 048
     Dates: start: 20101101
  3. LETAIRIS [Suspect]
     Route: 048
     Dates: start: 20080601, end: 20110106

REACTIONS (2)
  - SEPTIC SHOCK [None]
  - MULTI-ORGAN FAILURE [None]
